FAERS Safety Report 4674192-3 (Version None)
Quarter: 2005Q2

REPORT INFORMATION
  Report Type: 
  Country: None (occurrence: None)
  Receive Date: 20050526
  Receipt Date: 20050422
  Transmission Date: 20051028
  Serious: Yes (Death, Hospitalization)
  Sender: FDA-Public Use
  Company Number: 200513606GDDC

PATIENT
  Age: 55 Year
  Sex: Female

DRUGS (5)
  1. TAXOTERE [Suspect]
     Indication: NON-SMALL CELL LUNG CANCER
     Route: 042
     Dates: start: 20041203, end: 20050104
  2. BETANOID [Concomitant]
     Indication: NAUSEA
     Route: 042
     Dates: start: 20041203, end: 20050104
  3. ZAMANON [Concomitant]
     Indication: NAUSEA
     Route: 042
     Dates: start: 20041203, end: 20050104
  4. PHENERGAN [Concomitant]
     Indication: HYPERSENSITIVITY
     Route: 042
     Dates: start: 20041203, end: 20050104
  5. MEDROL [Concomitant]
     Indication: NAUSEA
     Dosage: DOSE: 16 MG FOR 5 DAYS
     Route: 048
     Dates: start: 20041203, end: 20050108

REACTIONS (4)
  - DEEP VEIN THROMBOSIS [None]
  - DYSPNOEA [None]
  - PULMONARY EMBOLISM [None]
  - RETINAL ARTERY OCCLUSION [None]
